FAERS Safety Report 4956187-5 (Version None)
Quarter: 2006Q1

REPORT INFORMATION
  Report Type: 
  Country: None (occurrence: None)
  Receive Date: 20060322
  Receipt Date: 20060313
  Transmission Date: 20060701
  Serious: Yes (Other)
  Sender: FDA-Public Use
  Company Number: 2006035598

PATIENT
  Age: 70 Year
  Sex: Female
  Weight: 83.9154 kg

DRUGS (3)
  1. ZYRTEC [Suspect]
     Indication: MULTIPLE ALLERGIES
     Dosage: 10 MG (10 MG, 1 IN 1 D)
  2. ALL OTHER THERAPEUTIC PRODUCTS (ALL OTHER THERAPEUTIC PRODUCTS) [Concomitant]
  3. POTASSIUM (POTASSIUM) [Concomitant]

REACTIONS (3)
  - RENAL CELL CARCINOMA STAGE UNSPECIFIED [None]
  - SPINAL OPERATION [None]
  - SURGICAL PROCEDURE REPEATED [None]
